FAERS Safety Report 7865871-5 (Version None)
Quarter: 2011Q4

REPORT INFORMATION
  Report Type: 
  Country: None (occurrence: None)
  Receive Date: 20111028
  Receipt Date: 20110311
  Transmission Date: 20120403
  Serious: No
  Sender: FDA-Public Use
  Company Number: US-GLAXOSMITHKLINE-A0917824A

PATIENT
  Age: 64 Year
  Sex: Female

DRUGS (4)
  1. ADVAIR DISKUS 100/50 [Suspect]
     Indication: CHRONIC OBSTRUCTIVE PULMONARY DISEASE
     Dosage: 1PUFF TWICE PER DAY
     Route: 055
     Dates: start: 20090101
  2. COMBIVENT [Concomitant]
  3. BUPROPION HYDROCHLORIDE [Concomitant]
  4. NEBULIZER [Concomitant]

REACTIONS (5)
  - SLUGGISHNESS [None]
  - PRODUCT QUALITY ISSUE [None]
  - DYSPNOEA [None]
  - CONDITION AGGRAVATED [None]
  - DRUG ADMINISTRATION ERROR [None]
